FAERS Safety Report 10959047 (Version 2)
Quarter: 2015Q2

REPORT INFORMATION
  Report Type: Spontaneous
  Country: US (occurrence: US)
  Receive Date: 20150327
  Receipt Date: 20150525
  Transmission Date: 20150821
  Serious: No
  Sender: FDA-Public Use
  Company Number: US-JNJFOC-20140612823

PATIENT
  Sex: Female

DRUGS (2)
  1. DURAGESIC [Suspect]
     Active Substance: FENTANYL
     Indication: PAIN
     Route: 062
  2. FENTANYL TRANSDERMAL SYSTEM [Suspect]
     Active Substance: FENTANYL
     Indication: PAIN
     Route: 062

REACTIONS (14)
  - Asthenia [Unknown]
  - Vomiting [Unknown]
  - Mood altered [Unknown]
  - Malaise [Unknown]
  - Crying [Unknown]
  - Dizziness [Unknown]
  - Hyperhidrosis [Unknown]
  - Depression [Unknown]
  - Product adhesion issue [Unknown]
  - Product quality issue [Unknown]
  - Heart rate increased [Unknown]
  - Chest pain [Unknown]
  - Nausea [Unknown]
  - Headache [Unknown]
